FAERS Safety Report 8958504 (Version 1)
Quarter: 2012Q4

REPORT INFORMATION
  Report Type: Spontaneous
  Country: US (occurrence: None)
  Receive Date: 20121205
  Receipt Date: 20121205
  Transmission Date: 20130627
  Serious: Yes (Hospitalization)
  Sender: FDA-Public Use
  Company Number: None

PATIENT
  Sex: Female
  Weight: 73.94 kg

DRUGS (1)
  1. ACYCLOVIR 800 MG CARLSBAD TECH [Suspect]
     Indication: SHINGLES
     Dosage: 800 mg 5x day P. O.
     Route: 048

REACTIONS (1)
  - Paralysis [None]
